FAERS Safety Report 7367561-4 (Version None)
Quarter: 2011Q1

REPORT INFORMATION
  Report Type: 
  Country: None (occurrence: None)
  Receive Date: 20110314
  Receipt Date: 20110307
  Transmission Date: 20110831
  Serious: Yes (Death)
  Sender: FDA-Public Use
  Company Number: 2011SP010525

PATIENT
  Age: 66 Year
  Sex: Female
  Weight: 53 kg

DRUGS (18)
  1. SOFRATULE /00094302/ [Concomitant]
  2. NAUZELIN [Concomitant]
  3. HYALEIN [Concomitant]
  4. LASIX [Concomitant]
  5. COTRIM [Concomitant]
  6. DEPAKENE [Concomitant]
  7. PURSENNID (SENNOSIDE) [Concomitant]
  8. TEMODAL [Suspect]
     Indication: ANAPLASTIC ASTROCYTOMA
     Dosage: SEE IMAGE
     Route: 048
     Dates: start: 20061227, end: 20061231
  9. TEMODAL [Suspect]
     Indication: ANAPLASTIC ASTROCYTOMA
     Dosage: SEE IMAGE
     Route: 048
     Dates: start: 20070221, end: 20070225
  10. TEMODAL [Suspect]
     Indication: ANAPLASTIC ASTROCYTOMA
     Dosage: SEE IMAGE
     Route: 048
     Dates: start: 20070607, end: 20070611
  11. TEMODAL [Suspect]
     Indication: ANAPLASTIC ASTROCYTOMA
     Dosage: SEE IMAGE
     Route: 048
     Dates: start: 20070124, end: 20070128
  12. TEMODAL [Suspect]
     Indication: ANAPLASTIC ASTROCYTOMA
     Dosage: SEE IMAGE
     Route: 048
     Dates: start: 20070503, end: 20070507
  13. TEMODAL [Suspect]
     Indication: ANAPLASTIC ASTROCYTOMA
     Dosage: SEE IMAGE
     Route: 048
     Dates: start: 20070328, end: 20070401
  14. GASTER [Concomitant]
  15. DECADRON /00016002/ [Concomitant]
  16. CRAVIT [Concomitant]
  17. PERDIPINE [Concomitant]
  18. MAGNESIUM OXIDE [Concomitant]

REACTIONS (1)
  - DEATH [None]
